FAERS Safety Report 10430041 (Version 1)
Quarter: 2014Q3

REPORT INFORMATION
  Report Type: Spontaneous
  Country: US (occurrence: None)
  Receive Date: 20140903
  Receipt Date: 20140903
  Transmission Date: 20150326
  Serious: No
  Sender: FDA-Public Use
  Company Number: None

PATIENT
  Age: 26 Year
  Sex: Female
  Weight: 71.67 kg

DRUGS (1)
  1. ADDERALL [Suspect]
     Active Substance: AMPHETAMINE ASPARTATE\AMPHETAMINE SULFATE\DEXTROAMPHETAMINE SACCHARATE\DEXTROAMPHETAMINE SULFATE
     Indication: ATTENTION DEFICIT/HYPERACTIVITY DISORDER
     Dosage: 1.5 PILLS TWICE DAILY TAKEN BY MOUTH
     Route: 048
     Dates: start: 20140723, end: 20140823

REACTIONS (4)
  - Drug ineffective [None]
  - Product physical issue [None]
  - Product substitution issue [None]
  - Product quality issue [None]
